FAERS Safety Report 5694568-5 (Version None)
Quarter: 2008Q2

REPORT INFORMATION
  Report Type: 
  Country: None (occurrence: None)
  Receive Date: 20080404
  Receipt Date: 20080318
  Transmission Date: 20081010
  Serious: Yes (Hospitalization)
  Sender: FDA-Public Use
  Company Number: SE-AVENTIS-200812518GDDC

PATIENT
  Age: 76 Year
  Sex: Female

DRUGS (6)
  1. DAONIL [Suspect]
     Indication: DIABETES MELLITUS
     Route: 048
     Dates: end: 20080106
  2. METFORMIN HCL [Suspect]
     Indication: DIABETES MELLITUS
     Route: 048
  3. METOPROLOL TARTRATE [Suspect]
     Indication: HYPERTENSION
     Dates: end: 20080106
  4. MOVICOL                            /01053601/ [Concomitant]
     Route: 048
  5. SIMVASTATIN [Concomitant]
  6. WARAN [Concomitant]

REACTIONS (4)
  - BRADYCARDIA [None]
  - CONFUSIONAL STATE [None]
  - FALL [None]
  - HYPOGLYCAEMIA [None]
